FAERS Safety Report 19205899 (Version 2)
Quarter: 2021Q3

REPORT INFORMATION
  Report Type: Report from Study
  Country: CO (occurrence: CO)
  Receive Date: 20210503
  Receipt Date: 20210812
  Transmission Date: 20211014
  Serious: Yes (Other)
  Sender: FDA-Public Use
  Company Number: CO-JNJFOC-20210461408

PATIENT
  Age: 41 Year
  Sex: Female
  Weight: 50 kg

DRUGS (3)
  1. DOLIREN [Concomitant]
  2. TRAUMEEL [Concomitant]
     Active Substance: HOMEOPATHICS
  3. SIMPONI [Suspect]
     Active Substance: GOLIMUMAB
     Indication: RHEUMATOID ARTHRITIS
     Route: 058
     Dates: start: 20190710

REACTIONS (3)
  - Hypersensitivity [Recovering/Resolving]
  - Kidney infection [Recovering/Resolving]
  - Cyst [Recovering/Resolving]

NARRATIVE: CASE EVENT DATE: 202004
